FAERS Safety Report 16752993 (Version 2)
Quarter: 2019Q3

REPORT INFORMATION
  Report Type: Report from Study
  Country: JP (occurrence: JP)
  Receive Date: 20190829
  Receipt Date: 20190909
  Transmission Date: 20191005
  Serious: Yes (Other)
  Sender: FDA-Public Use
  Company Number: JP-SA-2019SA236680

PATIENT
  Age: 64 Year
  Sex: Male
  Weight: 75 kg

DRUGS (8)
  1. AFLIBERCEPT [Suspect]
     Active Substance: AFLIBERCEPT
     Indication: COLON CANCER
     Dosage: 4 MG/KG, QOW
     Route: 041
     Dates: start: 20180831, end: 20180914
  2. FLUOROURACIL. [Suspect]
     Active Substance: FLUOROURACIL
     Dosage: BOLUS: 350 MG/M2, CONTINUOUS IV INFUSION: 2100 MG/M2, QOW
     Route: 042
     Dates: start: 20181005, end: 20181102
  3. IRINOTECAN [Suspect]
     Active Substance: IRINOTECAN
     Indication: COLON CANCER
     Dosage: 120 MG/M2, 1X
     Route: 065
     Dates: start: 20180914, end: 20180914
  4. AFLIBERCEPT [Suspect]
     Active Substance: AFLIBERCEPT
     Dosage: 4 MG/KG, QOW
     Route: 041
     Dates: start: 20181005, end: 20181102
  5. IRINOTECAN [Suspect]
     Active Substance: IRINOTECAN
     Dosage: 150 MG/M2, 1X
     Route: 065
     Dates: start: 20180831, end: 20180831
  6. IRINOTECAN [Suspect]
     Active Substance: IRINOTECAN
     Dosage: 130 MG/M2, QOW
     Route: 065
     Dates: start: 20181005, end: 20181102
  7. CALCIUM FOLINATE [Suspect]
     Active Substance: LEUCOVORIN CALCIUM
     Indication: COLON CANCER
     Dosage: 200 MG/M2, QOW
     Route: 065
     Dates: start: 20180831, end: 20180914
  8. FLUOROURACIL. [Suspect]
     Active Substance: FLUOROURACIL
     Indication: COLON CANCER
     Dosage: BOLUS: 400 MG/M2, CONTINUOUS IV INFUSION: 2400 MG/M2, QOW
     Route: 042
     Dates: start: 20180831, end: 20180914

REACTIONS (2)
  - Pyrexia [Recovered/Resolved]
  - White blood cell count decreased [Recovered/Resolved]

NARRATIVE: CASE EVENT DATE: 20180920
